FAERS Safety Report 23110422 (Version 5)
Quarter: 2025Q2

REPORT INFORMATION
  Report Type: Spontaneous
  Country: US (occurrence: US)
  Receive Date: 20231026
  Receipt Date: 20250516
  Transmission Date: 20250716
  Serious: Yes (Life-Threatening, Hospitalization)
  Sender: TEVA
  Company Number: US-TEVA-2023-US-2937915

PATIENT
  Age: 35 Year
  Sex: Female

DRUGS (3)
  1. BUPROPION [Suspect]
     Active Substance: BUPROPION
     Indication: Depression
     Route: 048
  2. AMIODARONE [Suspect]
     Active Substance: AMIODARONE
     Indication: Ventricular tachycardia
     Route: 065
  3. CHARCOAL ACTIVATED [Concomitant]
     Active Substance: ACTIVATED CHARCOAL
     Indication: Gastrointestinal motility disorder
     Route: 065

REACTIONS (9)
  - Drug ineffective [Unknown]
  - Intentional overdose [Unknown]
  - Seizure [Recovered/Resolved]
  - Ventricular tachycardia [Recovered/Resolved]
  - Cardiogenic shock [Recovered/Resolved]
  - Unresponsive to stimuli [Recovered/Resolved]
  - Pupil fixed [Recovered/Resolved]
  - Brain stem syndrome [Recovered/Resolved]
  - Intestinal pseudo-obstruction [Recovering/Resolving]
